FAERS Safety Report 19036609 (Version 5)
Quarter: 2021Q4

REPORT INFORMATION
  Report Type: Report from Study
  Country: BR (occurrence: BR)
  Receive Date: 20210322
  Receipt Date: 20211115
  Transmission Date: 20220303
  Serious: Yes (Death, Life-Threatening, Hospitalization, Other)
  Sender: FDA-Public Use
  Company Number: BR-JNJFOC-20210331360

PATIENT
  Age: 69 Year
  Sex: Female
  Weight: 73 kg

DRUGS (11)
  1. CARFILZOMIB [Suspect]
     Active Substance: CARFILZOMIB
     Indication: Plasma cell myeloma
     Dosage: 36.62 MILLIGRAM, QWK
     Route: 042
     Dates: start: 20201222
  2. DARATUMUMAB [Suspect]
     Active Substance: DARATUMUMAB
     Indication: Plasma cell myeloma
     Dosage: UNK
     Route: 058
  3. DEXAMETHASONE [Suspect]
     Active Substance: DEXAMETHASONE
     Indication: Plasma cell myeloma
     Dosage: 70 MILLIGRAM/SQ. METER, QWK
     Route: 048
     Dates: start: 20201222
  4. ASPIRIN [Concomitant]
     Active Substance: ASPIRIN
     Indication: Thrombosis prophylaxis
     Dosage: 100 GRAM, QD
     Route: 065
     Dates: start: 20150501
  5. GABAPENTIN [Concomitant]
     Active Substance: GABAPENTIN
     Indication: Back pain
     Dosage: 300 MILLIGRAM, BID
     Route: 065
     Dates: start: 20150501
  6. TRAMADOL HYDROCHLORIDE [Concomitant]
     Active Substance: TRAMADOL HYDROCHLORIDE
     Indication: Bone pain
     Dosage: 50 MILLIGRAM
     Route: 065
     Dates: start: 20201116
  7. METAMIZOLE SODIUM [Concomitant]
     Active Substance: METAMIZOLE SODIUM
     Indication: Bone pain
     Dosage: 1 GRAM, TID
     Route: 065
     Dates: start: 20201116
  8. OMEPRAZOLE [Concomitant]
     Active Substance: OMEPRAZOLE
     Indication: Gastritis prophylaxis
     Dosage: 40 MILLIGRAM, QD
     Route: 065
     Dates: start: 20201116
  9. IVERMECTIN [Concomitant]
     Active Substance: IVERMECTIN
     Indication: Prophylaxis
     Dosage: 6 MILLIGRAM
     Route: 065
     Dates: start: 20201127
  10. ZOLEDRONIC ACID [Concomitant]
     Active Substance: ZOLEDRONIC ACID
     Indication: Prophylaxis
     Dosage: 4 MILLIGRAM, QMO
     Route: 065
     Dates: start: 20201202
  11. ACYCLOVIR [Concomitant]
     Active Substance: ACYCLOVIR
     Indication: Prophylaxis
     Dosage: 400 MILLIGRAM, BID
     Route: 065
     Dates: start: 20201202

REACTIONS (3)
  - COVID-19 [Fatal]
  - Thrombocytopenia [Recovered/Resolved]
  - Acute kidney injury [Not Recovered/Not Resolved]

NARRATIVE: CASE EVENT DATE: 20210307
